FAERS Safety Report 15093410 (Version 4)
Quarter: 2018Q3

REPORT INFORMATION
  Report Type: Spontaneous
  Country: BR (occurrence: BR)
  Receive Date: 20180629
  Receipt Date: 20180828
  Transmission Date: 20181010
  Serious: Yes (Death, Life-Threatening, Hospitalization)
  Sender: FDA-Public Use
  Company Number: BR-GEHC-2018CSU002548

PATIENT

DRUGS (15)
  1. HYDROCORTISONE. [Concomitant]
     Active Substance: HYDROCORTISONE
  2. DEXCHLORPHENIRAMINE [Concomitant]
     Active Substance: DEXCHLORPHENIRAMINE
  3. ALPROSTADIL. [Concomitant]
     Active Substance: ALPROSTADIL
     Indication: PATENT DUCTUS ARTERIOSUS
     Dosage: 81 ?G CONTINUOUS, UNK
     Dates: start: 20180424
  4. POTASSIUM CHLORIDE. [Concomitant]
     Active Substance: POTASSIUM CHLORIDE
     Dosage: 0.3 ML, QID
  5. PHENOBARBITAL SODIUM. [Concomitant]
     Active Substance: PHENOBARBITAL SODIUM
     Dosage: 7 DROPS, BID
  6. MIDAZOLAM [Concomitant]
     Active Substance: MIDAZOLAM HYDROCHLORIDE
     Indication: SEDATION
  7. DOPAMINE [Concomitant]
     Active Substance: DOPAMINE\DOPAMINE HYDROCHLORIDE
     Dosage: 20.2 MG CONTINUOUS, UNK
     Dates: start: 20180424
  8. RANITIDINE. [Concomitant]
     Active Substance: RANITIDINE
  9. POLYVITAMIN                        /02273501/ [Concomitant]
     Dosage: 6 DROPS, QD
     Route: 048
  10. GENTAMYCIN                         /00047101/ [Concomitant]
     Active Substance: GENTAMICIN
     Indication: INFECTION
     Dosage: UNK
     Dates: start: 20180425, end: 20180430
  11. ADRENALINE                         /00003901/ [Concomitant]
     Active Substance: EPINEPHRINE
     Dosage: 0.2 MG CONTINUOUS, UNK
     Dates: start: 20180424
  12. FENTANYL. [Concomitant]
     Active Substance: FENTANYL
     Indication: SEDATION
  13. SODIUM BICARBONATE. [Concomitant]
     Active Substance: SODIUM BICARBONATE
     Indication: METABOLIC ACIDOSIS
     Dosage: 17 ML, UNK
     Dates: start: 20180425
  14. OMNIPAQUE [Suspect]
     Active Substance: IOHEXOL
     Indication: CONGENITAL AORTIC ANOMALY
     Dosage: 3 ML, SINGLE
     Route: 042
     Dates: start: 20180503, end: 20180503
  15. AMPICILLIN [Concomitant]
     Active Substance: AMPICILLIN
     Indication: INFECTION
     Dosage: UNK
     Dates: start: 20180425

REACTIONS (8)
  - Bradycardia [Not Recovered/Not Resolved]
  - Acute kidney injury [Fatal]
  - Hypotension [Not Recovered/Not Resolved]
  - Multiple organ dysfunction syndrome [Not Recovered/Not Resolved]
  - Arrhythmia [Not Recovered/Not Resolved]
  - Shock [Not Recovered/Not Resolved]
  - Hypoperfusion [Not Recovered/Not Resolved]
  - Electrolyte imbalance [Not Recovered/Not Resolved]

NARRATIVE: CASE EVENT DATE: 20180504
